FAERS Safety Report 21856764 (Version 1)
Quarter: 2023Q1

REPORT INFORMATION
  Report Type: Spontaneous
  Country: GB (occurrence: GB)
  Receive Date: 20230113
  Receipt Date: 20230113
  Transmission Date: 20230418
  Serious: Yes (Other)
  Sender: FDA-Public Use
  Company Number: GB-SUN PHARMACEUTICAL INDUSTRIES LTD-2022R1-373344

PATIENT
  Sex: Male

DRUGS (8)
  1. ALBUTEROL [Suspect]
     Active Substance: ALBUTEROL
     Indication: Foetal heart rate decreased
     Dosage: 5 MILLIGRAM, TID
     Route: 064
  2. ALBUTEROL [Suspect]
     Active Substance: ALBUTEROL
     Dosage: 8 MILLIGRAM, TID
     Route: 064
  3. ALBUTEROL [Suspect]
     Active Substance: ALBUTEROL
     Dosage: 6 MILLIGRAM, TID
     Route: 064
  4. ALBUTEROL [Suspect]
     Active Substance: ALBUTEROL
     Dosage: 4 MILLIGRAM, TID
     Route: 064
  5. ALBUTEROL [Suspect]
     Active Substance: ALBUTEROL
     Dosage: 2 MILLIGRAM, TID
     Route: 064
  6. ALBUTEROL [Suspect]
     Active Substance: ALBUTEROL
     Dosage: TWO DOSES OF 2 MG AND ONE OF 4 MG, DAILY
     Route: 064
  7. ASPIRIN [Suspect]
     Active Substance: ASPIRIN
     Indication: Product used for unknown indication
     Dosage: UNK
     Route: 064
  8. HYDROXYCHLOROQUINE [Suspect]
     Active Substance: HYDROXYCHLOROQUINE
     Indication: Product used for unknown indication
     Dosage: UNK
     Route: 064

REACTIONS (4)
  - Ventricular extrasystoles [Unknown]
  - Foetal cardiac disorder [Unknown]
  - Foetal exposure during pregnancy [Unknown]
  - Premature baby [Unknown]
